FAERS Safety Report 5752337-1 (Version None)
Quarter: 2008Q2

REPORT INFORMATION
  Report Type: 
  Country: None (occurrence: None)
  Receive Date: 20080529
  Receipt Date: 20080521
  Transmission Date: 20081010
  Serious: Yes (Other)
  Sender: FDA-Public Use
  Company Number: RU-ABBOTT-08P-251-0445283-00

PATIENT
  Age: 48 Year
  Sex: Male

DRUGS (4)
  1. DEPAKENE [Suspect]
     Indication: EPILEPSY
     Route: 048
     Dates: end: 20080315
  2. DEPAKENE [Suspect]
     Route: 048
     Dates: start: 20080316, end: 20080317
  3. DEPAKENE [Suspect]
     Route: 048
     Dates: start: 20080317
  4. CARBAMAZEPINE [Concomitant]
     Indication: EPILEPSY
     Route: 048
     Dates: start: 20010101

REACTIONS (5)
  - BLOOD PRESSURE DECREASED [None]
  - DRUG INEFFECTIVE [None]
  - PHARMACEUTICAL PRODUCT COMPLAINT [None]
  - PHARMACEUTICAL PRODUCT COUNTERFEIT [None]
  - STATUS EPILEPTICUS [None]
